FAERS Safety Report 5504754-2 (Version None)
Quarter: 2007Q4

REPORT INFORMATION
  Report Type: 
  Country: None (occurrence: None)
  Receive Date: 20071102
  Receipt Date: 20071029
  Transmission Date: 20080405
  Serious: Yes (Other)
  Sender: FDA-Public Use
  Company Number: US-ASTRAZENECA-2007UW25061

PATIENT
  Age: 60 Year
  Sex: Female

DRUGS (2)
  1. NEXIUM [Suspect]
     Indication: EATING DISORDER SYMPTOM
     Route: 048
     Dates: start: 20070201, end: 20071028
  2. NEXIUM [Suspect]
     Indication: GASTROOESOPHAGEAL REFLUX DISEASE
     Route: 048
     Dates: start: 20070201, end: 20071028

REACTIONS (12)
  - CHILLS [None]
  - FEELING OF BODY TEMPERATURE CHANGE [None]
  - FLATULENCE [None]
  - GLOSSODYNIA [None]
  - HYPERHIDROSIS [None]
  - JAW DISORDER [None]
  - MUSCLE SPASMS [None]
  - MUSCULOSKELETAL DISCOMFORT [None]
  - NAUSEA [None]
  - PARAESTHESIA [None]
  - POOR PERIPHERAL CIRCULATION [None]
  - PULMONARY CONGESTION [None]
